FAERS Safety Report 8238497-1 (Version None)
Quarter: 2012Q1

REPORT INFORMATION
  Report Type: 
  Country: None (occurrence: None)
  Receive Date: 20120327
  Receipt Date: 20120322
  Transmission Date: 20120608
  Serious: No
  Sender: FDA-Public Use
  Company Number: US-PFIZER INC-2012075166

PATIENT
  Sex: Female

DRUGS (2)
  1. TOVIAZ [Suspect]
     Indication: HYPERTONIC BLADDER
     Dosage: 4 MG, 1X/DAY
     Route: 048
  2. TOVIAZ [Suspect]
     Dosage: 8 MG, 1X/DAY
     Route: 048

REACTIONS (2)
  - DIZZINESS [None]
  - DRUG INEFFECTIVE [None]
